FAERS Safety Report 13326135 (Version 3)
Quarter: 2017Q2

REPORT INFORMATION
  Report Type: Spontaneous
  Country: GB (occurrence: GB)
  Receive Date: 20170310
  Receipt Date: 20170407
  Transmission Date: 20170830
  Serious: Yes (Other)
  Sender: FDA-Public Use
  Company Number: GB-INTERNATIONAL MEDICATION SYSTEMS, LIMITED-1064142

PATIENT
  Age: 87 Year
  Sex: Female
  Weight: 46 kg

DRUGS (8)
  1. THYROXINE [Concomitant]
     Active Substance: LEVOTHYROXINE
  2. OLIVE OIL DROPS IN EARS [Concomitant]
  3. PENICILLIN [Concomitant]
     Active Substance: PENICILLIN
  4. CIPROFLOXACIN. [Concomitant]
     Active Substance: CIPROFLOXACIN
  5. PROLIA [Suspect]
     Active Substance: DENOSUMAB
  6. GTN [Concomitant]
     Active Substance: NITROGLYCERIN
  7. MORPHINE [Suspect]
     Active Substance: MORPHINE
     Indication: PAIN
  8. ASPIRIN. [Concomitant]
     Active Substance: ASPIRIN

REACTIONS (26)
  - Drug-disease interaction [Unknown]
  - Urinary tract infection [Recovered/Resolved]
  - Cardiac disorder [Unknown]
  - Stress [Unknown]
  - Cellulitis [Recovered/Resolved]
  - Drug ineffective [Unknown]
  - Depressed mood [Unknown]
  - Oropharyngeal pain [Not Recovered/Not Resolved]
  - Prolapse [Unknown]
  - Erythema [Unknown]
  - Arthralgia [Unknown]
  - Constipation [Recovered/Resolved]
  - Groin pain [Unknown]
  - Bone pain [Not Recovered/Not Resolved]
  - Blood pressure systolic increased [Recovered/Resolved]
  - Skin discolouration [Unknown]
  - Weight decreased [Unknown]
  - Hip fracture [Recovered/Resolved]
  - Abdominal pain lower [Recovered/Resolved]
  - Gait disturbance [Unknown]
  - Hypoacusis [Recovering/Resolving]
  - Procedural pain [Not Recovered/Not Resolved]
  - Influenza like illness [Not Recovered/Not Resolved]
  - Feeling cold [Unknown]
  - Incontinence [Unknown]
  - Malaise [Recovering/Resolving]

NARRATIVE: CASE EVENT DATE: 20170205
